FAERS Safety Report 5750870-X (Version None)
Quarter: 2008Q2

REPORT INFORMATION
  Report Type: 
  Country: None (occurrence: None)
  Receive Date: 20080528
  Receipt Date: 20080522
  Transmission Date: 20081010
  Serious: Yes (Other)
  Sender: FDA-Public Use
  Company Number: AU-ABBOTT-08P-008-0453056-00

PATIENT
  Sex: Male

DRUGS (1)
  1. E.E.S. [Suspect]
     Indication: CELLULITIS
     Route: 048
     Dates: start: 20070601, end: 20070614

REACTIONS (4)
  - ABDOMINAL DISTENSION [None]
  - ABDOMINAL PAIN [None]
  - HEPATITIS [None]
  - RESPIRATION ABNORMAL [None]
